FAERS Safety Report 9427742 (Version 2)
Quarter: 2013Q3

REPORT INFORMATION
  Report Type: Report from Study
  Country: CH (occurrence: CH)
  Receive Date: 20130730
  Receipt Date: 20130812
  Transmission Date: 20140515
  Serious: Yes (Other)
  Sender: FDA-Public Use
  Company Number: CH-GENZYME-CLOF-1002724

PATIENT
  Sex: Female
  Weight: 62 kg

DRUGS (9)
  1. EVOLTRA [Suspect]
     Indication: ACUTE MYELOID LEUKAEMIA
     Dosage: 17.3 MG, QD
     Route: 042
     Dates: start: 20130706, end: 20130708
  2. IDARUBICIN [Suspect]
     Indication: ACUTE MYELOID LEUKAEMIA
     Dosage: 20.76 MG, QD
     Route: 042
     Dates: start: 20130706, end: 20130708
  3. CYTARABINE [Suspect]
     Indication: ACUTE MYELOID LEUKAEMIA
     Dosage: 346 MG, QD
     Route: 042
     Dates: start: 20130706, end: 20130712
  4. METHYLPREDNISOLON [Concomitant]
     Indication: PROPHYLAXIS OF NAUSEA AND VOMITING
     Dosage: 125 MG, UNK
     Route: 042
     Dates: start: 20130706
  5. GRANISETRON [Concomitant]
     Indication: PROPHYLAXIS OF NAUSEA AND VOMITING
     Dosage: 3 MG, UNK
     Route: 042
     Dates: start: 20130706
  6. FASTURTEC [Concomitant]
     Indication: PROPHYLAXIS
     Dosage: 7.5 MG, UNK
     Route: 042
     Dates: start: 20130706
  7. ALLOPURINOL [Concomitant]
     Indication: HYPERURICAEMIA
     Dosage: 300 MG, UNK
     Route: 048
     Dates: start: 20130707
  8. RANITIDIN [Concomitant]
     Indication: PROPHYLAXIS
     Dosage: 300 MG, UNK
     Route: 048
     Dates: start: 20130706
  9. CO-TRIMAZOLE [Concomitant]
     Indication: INFECTION PROPHYLAXIS
     Dosage: 800 MG, UNK
     Route: 048
     Dates: start: 20130706

REACTIONS (1)
  - Oesophageal haemorrhage [Recovered/Resolved]
